FAERS Safety Report 16570188 (Version 3)
Quarter: 2019Q4

REPORT INFORMATION
  Report Type: Report from Study
  Country: None (occurrence: US)
  Receive Date: 20190715
  Receipt Date: 20191016
  Transmission Date: 20200122
  Serious: Yes (Hospitalization, Other)
  Sender: FDA-Public Use
  Company Number: US-ABBVIE-19K-163-2850625-00

PATIENT
  Sex: Female

DRUGS (4)
  1. VENCLEXTA [Suspect]
     Active Substance: VENETOCLAX
     Indication: PULMONARY ARTERIAL HYPERTENSION
     Route: 048
     Dates: start: 2019, end: 2019
  2. DOMPERIDONE [Concomitant]
     Active Substance: DOMPERIDONE
     Indication: PRODUCT USED FOR UNKNOWN INDICATION
  3. VENCLEXTA [Suspect]
     Active Substance: VENETOCLAX
     Dosage: DOSE DECREASED
     Route: 048
     Dates: start: 2019
  4. VENCLEXTA [Suspect]
     Active Substance: VENETOCLAX
     Indication: ACUTE MYELOID LEUKAEMIA
     Route: 048
     Dates: start: 20190625, end: 2019

REACTIONS (6)
  - Infection [Unknown]
  - Disease recurrence [Unknown]
  - Off label use [Unknown]
  - Pulmonary hypertension [Unknown]
  - Impaired gastric emptying [Unknown]
  - Hypertension [Unknown]

NARRATIVE: CASE EVENT DATE: 2019
